FAERS Safety Report 22168743 (Version 14)
Quarter: 2025Q2

REPORT INFORMATION
  Report Type: Report from Study
  Country: US (occurrence: US)
  Receive Date: 20230403
  Receipt Date: 20250411
  Transmission Date: 20250717
  Serious: Yes (Hospitalization, Other)
  Sender: NOVARTIS
  Company Number: US-002147023-NVSC2023US071657

PATIENT
  Sex: Female

DRUGS (5)
  1. COSENTYX [Suspect]
     Active Substance: SECUKINUMAB
     Indication: Psoriasis
     Route: 058
     Dates: start: 202308
  2. COSENTYX [Suspect]
     Active Substance: SECUKINUMAB
     Dosage: 300 MG, QMO
     Route: 058
  3. COSENTYX [Suspect]
     Active Substance: SECUKINUMAB
     Route: 065
  4. COSENTYX [Suspect]
     Active Substance: SECUKINUMAB
     Dosage: 300 MG, QMO
     Route: 058
     Dates: start: 202501
  5. ELIDEL [Suspect]
     Active Substance: PIMECROLIMUS
     Indication: Product used for unknown indication
     Route: 065

REACTIONS (18)
  - Influenza [Unknown]
  - Haemorrhage [Unknown]
  - Erythema [Unknown]
  - Abdominal pain [Unknown]
  - Kidney infection [Unknown]
  - Stress [Unknown]
  - Anxiety [Unknown]
  - Tremor [Unknown]
  - Headache [Unknown]
  - Pruritus [Unknown]
  - Back pain [Unknown]
  - Urinary tract infection [Unknown]
  - Diarrhoea [Unknown]
  - Psoriasis [Unknown]
  - Skin fissures [Unknown]
  - Pain of skin [Unknown]
  - Rash [Unknown]
  - Skin haemorrhage [Unknown]
